FAERS Safety Report 6748218-7 (Version None)
Quarter: 2010Q2

REPORT INFORMATION
  Report Type: 
  Country: None (occurrence: None)
  Receive Date: 20100601
  Receipt Date: 20100517
  Transmission Date: 20101027
  Serious: Yes (Hospitalization, Other)
  Sender: FDA-Public Use
  Company Number: US-ASTRAZENECA-2007UW04040

PATIENT
  Age: 43 Year
  Sex: Female
  Weight: 72.6 kg

DRUGS (19)
  1. SEROQUEL [Suspect]
     Indication: MENTAL DISORDER
     Dosage: 200-300 MG
     Route: 048
     Dates: start: 20030101
  2. SEROQUEL [Suspect]
     Dosage: 100 MG TO 600 MG
     Route: 048
     Dates: start: 20030626
  3. SEROQUEL [Suspect]
     Route: 048
     Dates: start: 20050809
  4. ZYPREXA [Suspect]
     Dosage: 5 MG TO 7.5 MG
     Route: 048
     Dates: start: 20030501, end: 20030703
  5. PROZAC [Concomitant]
     Dosage: 20 MG TO 40 MG
     Route: 048
     Dates: start: 20030501
  6. IBUPROFEN [Concomitant]
     Route: 048
     Dates: start: 20021105
  7. FLEXERIL [Concomitant]
     Indication: SOMNOLENCE
     Dates: start: 20021105
  8. LOTREL [Concomitant]
     Dosage: 10 MG TO 20 MG
     Route: 048
     Dates: start: 20060313
  9. LORTAB [Concomitant]
     Dosage: 75/500 MG
     Route: 048
     Dates: start: 20060509
  10. FLONASE [Concomitant]
     Dosage: 50 MCG, 2 SPRAYS, QD
     Dates: start: 20050118
  11. ZYRTEC [Concomitant]
     Route: 048
     Dates: start: 20050118
  12. PHENAZOPYRIDINE HCL TAB [Concomitant]
     Route: 048
     Dates: start: 20060313
  13. ED-CHLOR-TAN [Concomitant]
     Route: 048
     Dates: start: 20060313
  14. KENALOG CORTIZONE [Concomitant]
     Dosage: 10 MG
     Route: 030
     Dates: start: 20050118
  15. ATROVENT [Concomitant]
     Dosage: 0.5 MG NEQ
     Route: 048
     Dates: start: 20050118
  16. EFFEXOR XR [Concomitant]
     Dosage: 75 MG TO 225 MG
     Route: 048
     Dates: start: 20040624, end: 20040902
  17. CYMBALTA [Concomitant]
     Route: 048
     Dates: start: 20040902
  18. FLUOXETINE HCL [Concomitant]
     Dates: start: 20030904
  19. TRAZODONE HCL [Concomitant]
     Dates: start: 20040608

REACTIONS (3)
  - DIABETES MELLITUS [None]
  - DIABETIC NEUROPATHY [None]
  - HYPERGLYCAEMIA [None]
